FAERS Safety Report 12127167 (Version 1)
Quarter: 2016Q1

REPORT INFORMATION
  Report Type: Report from Study
  Country: CA (occurrence: CA)
  Receive Date: 20160229
  Receipt Date: 20160229
  Transmission Date: 20160526
  Serious: Yes (Life-Threatening, Hospitalization, Other)
  Sender: FDA-Public Use
  Company Number: PHHY2015CA113621

PATIENT
  Sex: Male

DRUGS (2)
  1. BISOPROLOL [Concomitant]
     Active Substance: BISOPROLOL
     Indication: HYPERTENSION
     Route: 065
  2. SANDOSTATIN LAR DEPOT [Suspect]
     Active Substance: OCTREOTIDE ACETATE
     Indication: PANCREATITIS CHRONIC
     Dosage: 30 MG, QMO (EVERY 04 WEEKS)
     Route: 030
     Dates: start: 201507, end: 201512

REACTIONS (6)
  - Feeling abnormal [Unknown]
  - Product use issue [Unknown]
  - Post procedural complication [Unknown]
  - Coma [Unknown]
  - Drug ineffective [Unknown]
  - Incorrect route of drug administration [Unknown]
